FAERS Safety Report 7332098-5 (Version None)
Quarter: 2011Q1

REPORT INFORMATION
  Report Type: 
  Country: None (occurrence: None)
  Receive Date: 20110304
  Receipt Date: 20110224
  Transmission Date: 20110831
  Serious: Yes (Life-Threatening, Hospitalization)
  Sender: FDA-Public Use
  Company Number: JP-B.I. PHARMACEUTICALS,INC./RIDGEFIELD-2011-DE-00747GD

PATIENT
  Sex: Male
  Weight: 45 kg

DRUGS (15)
  1. VESICARE [Concomitant]
     Dosage: 5 MG
     Route: 048
  2. LOXONIN [Suspect]
     Indication: BACK PAIN
     Route: 048
     Dates: start: 20030101, end: 20090301
  3. MOBIC [Suspect]
     Indication: BACK PAIN
  4. UROCALUN [Concomitant]
     Dosage: 2025 MG
     Route: 048
  5. GASTROZEPIN [Concomitant]
     Dosage: 225 MG
     Route: 048
  6. CALBOCK [Concomitant]
     Dosage: 16 MG
     Route: 048
  7. SESDEN [Concomitant]
     Dosage: 270 MG
     Route: 048
  8. FRANDOL [Concomitant]
     Dosage: 80 MG
     Route: 048
  9. ISALON [Concomitant]
     Dosage: 900 MG
     Route: 048
  10. ARICEPT [Concomitant]
     Dosage: 5 MG
     Route: 048
  11. ELASZYM [Concomitant]
     Dosage: 7200 MG
     Route: 048
  12. TAGAMET [Concomitant]
     Dosage: 1800 MG
     Route: 048
  13. MOBIC [Suspect]
     Indication: NEPHROLITHIASIS
     Route: 048
  14. FLIVAS OD [Concomitant]
     Dosage: 50 MG
     Route: 048
  15. URALYT [Concomitant]
     Dosage: 9DF
     Route: 048

REACTIONS (2)
  - INTESTINAL STENOSIS [None]
  - MELAENA [None]
